FAERS Safety Report 6395242-2 (Version None)
Quarter: 2009Q4

REPORT INFORMATION
  Report Type: 
  Country: None (occurrence: None)
  Receive Date: 20091009
  Receipt Date: 20091006
  Transmission Date: 20100525
  Serious: Yes (Other)
  Sender: FDA-Public Use
  Company Number: GB-RB-021242-09

PATIENT
  Sex: Male

DRUGS (2)
  1. SUBUTEX [Suspect]
     Indication: DRUG EXPOSURE DURING PREGNANCY
     Dosage: UNKNOWN DOSING INFORMATION.
     Route: 064
  2. SUBUTEX [Suspect]
     Indication: DRUG EXPOSURE VIA BREAST MILK
     Dosage: DOSING INFORMATION UNKNOWN.
     Route: 063

REACTIONS (4)
  - CONVULSION [None]
  - DRUG EXPOSURE DURING PREGNANCY [None]
  - DRUG EXPOSURE VIA BREAST MILK [None]
  - WITHDRAWAL SYNDROME [None]
